FAERS Safety Report 7797604-5 (Version None)
Quarter: 2011Q4

REPORT INFORMATION
  Report Type: 
  Country: None (occurrence: None)
  Receive Date: 20111005
  Receipt Date: 20110929
  Transmission Date: 20120403
  Serious: Yes (Death, Life-Threatening, Hospitalization, Other)
  Sender: FDA-Public Use
  Company Number: JP-ELI_LILLY_AND_COMPANY-JP201108005511

PATIENT
  Sex: Female
  Weight: 46 kg

DRUGS (4)
  1. LOXOPROFEN SODIUM [Concomitant]
     Indication: CANCER PAIN
     Dosage: 60 MG, QD
     Route: 048
  2. GEMZAR [Suspect]
     Indication: BREAST CANCER
     Dosage: 1250 MG/M2, EVERY 2 WEEKS
     Route: 042
     Dates: start: 20110308, end: 20110315
  3. OXYCODONE HYDROCHLORIDE [Concomitant]
     Indication: CANCER PAIN
     Dosage: 2.5 MG, QD
     Route: 048
     Dates: start: 20110222
  4. MUCOSTA [Concomitant]
     Indication: CANCER PAIN
     Dosage: 100 MG, QD
     Route: 048

REACTIONS (5)
  - NEOPLASM PROGRESSION [None]
  - PANCREATITIS [None]
  - PSEUDOMEMBRANOUS COLITIS [None]
  - ANAEMIA [None]
  - TUMOUR LYSIS SYNDROME [None]
